FAERS Safety Report 8444310-X (Version None)
Quarter: 2012Q2

REPORT INFORMATION
  Report Type: 
  Country: None (occurrence: None)
  Receive Date: 20120323
  Receipt Date: 20110524
  Transmission Date: 20120825
  Serious: Yes (Hospitalization)
  Sender: FDA-Public Use
  Company Number: 163-21880-11053128

PATIENT
  Age: 52 Year
  Sex: Male
  Weight: 129.5 kg

DRUGS (10)
  1. OXYCODONE HCL [Concomitant]
  2. ZOMETA [Concomitant]
  3. AMBIEN [Concomitant]
  4. AMITRIPTYLIN (AMITRIPTYLINE HYDROCLORIDE) [Concomitant]
  5. ISONIAZID [Concomitant]
  6. PROCHLORPERAZINE MALEATE [Concomitant]
  7. LYRICA [Concomitant]
  8. ZOLPIDEM [Concomitant]
  9. OMEPRAZOLE [Concomitant]
  10. REVLIMID [Suspect]
     Indication: MULTIPLE MYELOMA
     Dosage: 25 MG, 1 IN 1 D, PO
     Route: 048
     Dates: start: 20100501

REACTIONS (3)
  - RASH [None]
  - NEUTROPENIA [None]
  - PNEUMONIA [None]
